FAERS Safety Report 8589092-6 (Version None)
Quarter: 2012Q3

REPORT INFORMATION
  Report Type: 
  Country: None (occurrence: None)
  Receive Date: 20120813
  Receipt Date: 20120810
  Transmission Date: 20120928
  Serious: Yes (Other)
  Sender: FDA-Public Use
  Company Number: BR-BAYER-2012-081627

PATIENT
  Age: 22 Year
  Sex: Female

DRUGS (1)
  1. ULTRAVIST 150 [Suspect]
     Dosage: UNK UNK, ONCE
     Route: 042
     Dates: start: 20120807, end: 20120807

REACTIONS (3)
  - LARYNGEAL OEDEMA [None]
  - EYE OEDEMA [None]
  - RASH [None]
